FAERS Safety Report 7799857-6 (Version None)
Quarter: 2011Q4

REPORT INFORMATION
  Report Type: 
  Country: None (occurrence: None)
  Receive Date: 20111004
  Receipt Date: 20110920
  Transmission Date: 20120403
  Serious: Yes (Hospitalization)
  Sender: FDA-Public Use
  Company Number: 2011SP041391

PATIENT
  Age: 40 Year
  Sex: Male
  Weight: 109.7 kg

DRUGS (10)
  1. TEMODAR [Suspect]
     Indication: GLIOMA
     Dosage: 200 MG/M2
     Dates: start: 20101103, end: 20110917
  2. DECADRON [Concomitant]
  3. DECADRON [Concomitant]
  4. PREDNISONE [Concomitant]
  5. ATIVAN [Concomitant]
  6. TYLENOL-500 [Concomitant]
  7. NORCO [Concomitant]
  8. ZOFRAN [Concomitant]
  9. KEPPRA [Concomitant]
  10. PANTOPRAZOLE [Concomitant]

REACTIONS (22)
  - VOMITING [None]
  - RALES [None]
  - PLEURITIC PAIN [None]
  - UPPER RESPIRATORY TRACT INFECTION [None]
  - BACTERIAL TEST POSITIVE [None]
  - NAUSEA [None]
  - VISUAL IMPAIRMENT [None]
  - CHILLS [None]
  - CONVULSION [None]
  - FATIGUE [None]
  - PRODUCTIVE COUGH [None]
  - LYMPHOPENIA [None]
  - RASH [None]
  - PRURITUS [None]
  - HYPERHIDROSIS [None]
  - REFUSAL OF TREATMENT BY PATIENT [None]
  - PNEUMONIA [None]
  - WHITE BLOOD CELL COUNT DECREASED [None]
  - PLATELET COUNT DECREASED [None]
  - PYREXIA [None]
  - HEADACHE [None]
  - MUSCULAR WEAKNESS [None]
